FAERS Safety Report 6062942-3 (Version None)
Quarter: 2009Q1

REPORT INFORMATION
  Report Type: 
  Country: None (occurrence: None)
  Receive Date: 20090203
  Receipt Date: 20090127
  Transmission Date: 20090719
  Serious: Yes (Other)
  Sender: FDA-Public Use
  Company Number: A0741369A

PATIENT
  Age: 72 Year
  Sex: Male
  Weight: 80.9 kg

DRUGS (5)
  1. ADVAIR DISKUS 100/50 [Suspect]
     Indication: ASTHMA
     Dosage: 1PUFF TWICE PER DAY
     Route: 055
     Dates: start: 20061001, end: 20080401
  2. LIPITOR [Concomitant]
  3. TOPROL-XL [Concomitant]
  4. LISINOPRIL [Concomitant]
  5. ASPIRIN [Concomitant]

REACTIONS (5)
  - BRONCHITIS [None]
  - CARDIAC DISORDER [None]
  - DYSPNOEA [None]
  - PNEUMONIA [None]
  - VIRAL INFECTION [None]
